FAERS Safety Report 9018271 (Version 1)
Quarter: 2013Q1

REPORT INFORMATION
  Report Type: Spontaneous
  Country: US (occurrence: None)
  Receive Date: 20130111
  Receipt Date: 20130111
  Transmission Date: 20140127
  Serious: Yes (Other)
  Sender: FDA-Public Use
  Company Number: None

PATIENT
  Age: 29 Year
  Sex: Female
  Weight: 64.41 kg

DRUGS (1)
  1. PROVERA [Suspect]
     Indication: CONTRACEPTION
     Dosage: 150 MG IM EVERY 3 MONTHS
     Dates: start: 20090923, end: 20121023

REACTIONS (1)
  - Pregnancy with implant contraceptive [None]
